FAERS Safety Report 13551427 (Version 3)
Quarter: 2017Q3

REPORT INFORMATION
  Report Type: Report from Study
  Country: US (occurrence: US)
  Receive Date: 20170516
  Receipt Date: 20170808
  Transmission Date: 20171127
  Serious: Yes (Other)
  Sender: FDA-Public Use
  Company Number: US-NAPPMUNDI-USA-2017-0138845

PATIENT
  Age: 64 Year
  Sex: Female

DRUGS (2)
  1. OXYCODONE HYDROCHLORIDE. [Suspect]
     Active Substance: OXYCODONE HYDROCHLORIDE
     Dosage: (4 X 80 MG) 320 MG, PM
     Route: 048
     Dates: start: 200906
  2. OXYCODONE HYDROCHLORIDE. [Suspect]
     Active Substance: OXYCODONE HYDROCHLORIDE
     Indication: PAIN
     Dosage: (3 X 80 MG) 240 MG, AM
     Route: 048
     Dates: start: 200906

REACTIONS (5)
  - Bronchitis [Unknown]
  - Malaise [Unknown]
  - Atypical pneumonia [Unknown]
  - Surgery [Unknown]
  - Impaired work ability [Unknown]

NARRATIVE: CASE EVENT DATE: 201704
